FAERS Safety Report 4444108-3 (Version None)
Quarter: 2004Q3

REPORT INFORMATION
  Report Type: 
  Country: None (occurrence: None)
  Receive Date: 20040729
  Receipt Date: 20030612
  Transmission Date: 20050211
  Serious: Yes (Other)
  Sender: FDA-Public Use
  Company Number: US-JNJFOC-20031002428

PATIENT
  Age: 75 Year
  Sex: Female
  Weight: 87.5442 kg

DRUGS (13)
  1. RISPERDAL [Suspect]
     Indication: AGITATION
     Dosage: 0.5 MG, 2 IN 1 DAY, ORAL
     Route: 048
     Dates: start: 20011018
  2. ARICEPT [Concomitant]
  3. VITAMIN E [Concomitant]
  4. CLONIDINE [Concomitant]
  5. PAROXETINE HCL [Concomitant]
  6. GLYBURIDE [Concomitant]
  7. ALPRAZOLAM [Concomitant]
  8. TRAZODONE HCL [Concomitant]
  9. LISINOPRIL [Concomitant]
  10. ACETYLSALICYLIC ACID SRT [Concomitant]
  11. SIMVASTATIN [Concomitant]
  12. RABEPRAZOLE SODIUM [Concomitant]
  13. DONEPEZIL HCL [Concomitant]

REACTIONS (8)
  - CONFUSIONAL STATE [None]
  - GAIT DISTURBANCE [None]
  - HALLUCINATION, AUDITORY [None]
  - HALLUCINATION, VISUAL [None]
  - INCREASED APPETITE [None]
  - INSOMNIA [None]
  - TRANSIENT ISCHAEMIC ATTACK [None]
  - WEIGHT INCREASED [None]
